FAERS Safety Report 18740664 (Version 1)
Quarter: 2021Q1

REPORT INFORMATION
  Report Type: Spontaneous
  Country: IN (occurrence: IN)
  Receive Date: 20210114
  Receipt Date: 20210114
  Transmission Date: 20210419
  Serious: Yes (Death, Life-Threatening, Hospitalization)
  Sender: FDA-Public Use
  Company Number: IN-MYLANLABS-2021M1001773

PATIENT
  Age: 51 Year
  Sex: Female

DRUGS (2)
  1. OMNACORTIL                         /00016201/ [Suspect]
     Active Substance: PREDNISOLONE
     Indication: TAKAYASU^S ARTERITIS
     Dosage: 2.5 MILLIGRAM, QD(CONSERVATIVE THERAPY)
     Route: 065
     Dates: start: 2011
  2. METHOTREXATE. [Suspect]
     Active Substance: METHOTREXATE
     Indication: TAKAYASU^S ARTERITIS
     Dosage: 15 MILLIGRAM, QW(CONSERVATIVE THERAPY)
     Route: 065
     Dates: start: 2011

REACTIONS (7)
  - Therapy non-responder [Unknown]
  - Diarrhoea haemorrhagic [Unknown]
  - Pancytopenia [Fatal]
  - Sepsis [Recovered/Resolved]
  - Multiple organ dysfunction syndrome [Fatal]
  - Hypotension [Unknown]
  - Respiratory distress [Unknown]
